FAERS Safety Report 24050994 (Version 1)
Quarter: 2024Q3

REPORT INFORMATION
  Report Type: Spontaneous
  Country: GB (occurrence: GB)
  Receive Date: 20240704
  Receipt Date: 20240704
  Transmission Date: 20241017
  Serious: Yes (Other)
  Sender: TEVA
  Company Number: GB-MHRA-TPP1279877C19008800YC1719250422279

PATIENT
  Age: 79 Year
  Sex: Female
  Weight: 66 kg

DRUGS (11)
  1. ATORVASTATIN [Suspect]
     Active Substance: ATORVASTATIN
     Indication: Ill-defined disorder
     Route: 065
  2. PREDNISOLONE [Concomitant]
     Active Substance: PREDNISOLONE
     Indication: Ill-defined disorder
     Dosage: TAKE 6 IN THE MORNING FOR 5 DAYS, DOSE FORM REPORTED: TPP YC - PLEASE RECLASSIFY, DURATION: 6 DAYS
     Dates: start: 20240513, end: 20240518
  3. ACETAMINOPHEN [Concomitant]
     Active Substance: ACETAMINOPHEN
     Indication: Ill-defined disorder
     Dosage: TAKE ONE OR TWO UP TO 4 TIMES/DAY AS REQUIRED, DOSE FORM REPORTED: TPP YC - PLEASE RECLASSIFY
     Dates: start: 20240221
  4. PREGABALIN [Concomitant]
     Active Substance: PREGABALIN
     Indication: Ill-defined disorder
     Dosage: TAKE TWO CAPSULES TWICE DAILY, DOSE FORM REPORTED: TPP YC - PLEASE RECLASSIFY
     Dates: start: 20240304
  5. MEMANTINE [Concomitant]
     Active Substance: MEMANTINE
     Indication: Ill-defined disorder
     Dosage: TAKE ONE DAILY, DOSE FORM REPORTED: TPP YC - PLEASE RECLASSIFY
     Dates: start: 20240221
  6. AMOXICILLIN [Concomitant]
     Active Substance: AMOXICILLIN
     Indication: Ill-defined disorder
     Dosage: TIME INTERVAL: 0.33333333 DAYS: TAKE ONE 3 TIMES/DAY, DOSE FORM REPORTED: TPP YC - PLEASE RECLASS...
     Dates: start: 20240513, end: 20240518
  7. GATALIN [Concomitant]
     Indication: Ill-defined disorder
     Dosage: TAKE ONE DAILY, DOSE FORM REPORTED: TPP YC - PLEASE RECLASSIFY
     Dates: start: 20240221
  8. SERTRALINE [Concomitant]
     Active Substance: SERTRALINE HYDROCHLORIDE
     Indication: Ill-defined disorder
     Dosage: ONE DAILY, DOSE FORM REPORTED: TPP YC - PLEASE RECLASSIFY
     Dates: start: 20240221
  9. DOXYCYCLINE [Concomitant]
     Active Substance: DOXYCYCLINE\DOXYCYCLINE HYCLATE
     Indication: Ill-defined disorder
     Dosage: TAKE TWO NOW THEN ONE DAILY FOR 4 DAYS TO TREAT..., DOSE FORM REPORTED: TPP YC - PLEASE RECLASSIF...
     Dates: start: 20240416, end: 20240421
  10. AMLODIPINE [Concomitant]
     Active Substance: AMLODIPINE BESYLATE
     Indication: Ill-defined disorder
     Dosage: TAKE ONE DAILY, DOSE FORM REPORTED: TPP YC - PLEASE RECLASSIFY
     Dates: start: 20240221
  11. FAMOTIDINE [Concomitant]
     Active Substance: FAMOTIDINE
     Indication: Ill-defined disorder
     Dosage: ONE DAILY, DOSE FORM REPORTED: TPP YC - PLEASE RECLASSIFY
     Dates: start: 20240221

REACTIONS (1)
  - Drug-induced liver injury [Recovered/Resolved]
